FAERS Safety Report 15800047 (Version 1)
Quarter: 2019Q1

REPORT INFORMATION
  Report Type: Spontaneous
  Country: US (occurrence: US)
  Receive Date: 20190108
  Receipt Date: 20190108
  Transmission Date: 20190417
  Serious: No
  Sender: FDA-Public Use
  Company Number: US-009507513-1812USA012932

PATIENT
  Age: 26 Year
  Sex: Female

DRUGS (3)
  1. ESCITALOPRAM [Concomitant]
     Active Substance: ESCITALOPRAM OXALATE
  2. NUVARING [Suspect]
     Active Substance: ETHINYL ESTRADIOL\ETONOGESTREL
     Dosage: STRENGTH:.015/.12 (UNITS NOT REPORTED), 1 RING FOR 4 CONTINUOUS WEEKS
     Route: 067
     Dates: start: 201705
  3. NUVARING [Suspect]
     Active Substance: ETHINYL ESTRADIOL\ETONOGESTREL
     Dosage: STRENGTH:.015/.12 (UNITS NOT REPORTED), 1 RING FOR 4 CONTINUOUS WEEKS
     Route: 067
     Dates: start: 201809

REACTIONS (2)
  - Incorrect product administration duration [Not Recovered/Not Resolved]
  - Metrorrhagia [Not Recovered/Not Resolved]

NARRATIVE: CASE EVENT DATE: 2018
